FAERS Safety Report 6370976-4 (Version None)
Quarter: 2009Q3

REPORT INFORMATION
  Report Type: 
  Country: None (occurrence: None)
  Receive Date: 20090923
  Receipt Date: 20090911
  Transmission Date: 20100115
  Serious: Yes (Other)
  Sender: FDA-Public Use
  Company Number: CA-JNJFOC-20090905079

PATIENT
  Age: 37 Year
  Sex: Female

DRUGS (3)
  1. PARACETAMOL / CAFFEINE / CODEINE PHOSPHATE [Suspect]
     Indication: DRUG USE FOR UNKNOWN INDICATION
     Route: 065
  2. PARACETAMOL / CAFFEINE / CODEINE PHOSPHATE [Suspect]
     Route: 065
  3. PARACETAMOL / CAFFEINE / CODEINE PHOSPHATE [Suspect]
     Route: 065

REACTIONS (4)
  - BALANCE DISORDER [None]
  - DEAFNESS [None]
  - OVERDOSE [None]
  - TINNITUS [None]
